FAERS Safety Report 6617608-5 (Version None)
Quarter: 2010Q1

REPORT INFORMATION
  Report Type: 
  Country: None (occurrence: None)
  Receive Date: 20100302
  Receipt Date: 20100219
  Transmission Date: 20100710
  Serious: Yes (Other)
  Sender: FDA-Public Use
  Company Number: 2010AP000327

PATIENT
  Age: 22 Year
  Sex: Male

DRUGS (2)
  1. OMEPRAZOLE [Suspect]
     Indication: DYSPEPSIA
  2. CLOZAPINE [Suspect]
     Dosage: 350 MG;QD;PO
     Route: 048

REACTIONS (4)
  - DYSPNOEA [None]
  - SEDATION [None]
  - SOMNOLENCE [None]
  - VOMITING [None]
